FAERS Safety Report 4325152-3 (Version None)
Quarter: 2004Q1

REPORT INFORMATION
  Report Type: 
  Country: None (occurrence: None)
  Receive Date: 20040323
  Receipt Date: 20040205
  Transmission Date: 20041129
  Serious: No
  Sender: FDA-Public Use
  Company Number: USA040157990

PATIENT
  Age: 88 Year
  Sex: Male
  Weight: 80 kg

DRUGS (1)
  1. CIALIS [Suspect]
     Dosage: 10 MG/ AS NEEDED
     Dates: start: 20040129

REACTIONS (1)
  - DRUG INEFFECTIVE [None]
